FAERS Safety Report 22220679 (Version 1)
Quarter: 2023Q2

REPORT INFORMATION
  Report Type: Spontaneous
  Country: EG (occurrence: EG)
  Receive Date: 20230417
  Receipt Date: 20230417
  Transmission Date: 20230721
  Serious: Yes (Hospitalization, Other)
  Sender: FDA-Public Use
  Company Number: EG-NOVOPROD-1049161

PATIENT
  Age: 745 Month
  Sex: Male
  Weight: 80 kg

DRUGS (8)
  1. INSULIN HUMAN [Suspect]
     Active Substance: INSULIN HUMAN
     Indication: Diabetes mellitus
     Dosage: UNK
     Route: 058
  2. LIBRAX [Concomitant]
     Active Substance: CHLORDIAZEPOXIDE HYDROCHLORIDE\CLIDINIUM BROMIDE
     Indication: Urinary retention
     Dosage: 1 TAB BEFORE BREAKFAST
     Route: 048
  3. MELGAIN [Concomitant]
     Indication: Neuropathy peripheral
     Dosage: 1 TAB AFTER BREAKFAST
     Route: 048
  4. NEUROVIT [THIAMINE HYDROCHLORIDE] [Concomitant]
     Indication: Neuropathy peripheral
     Dosage: 1 TAB AFTER BREAKFAST
     Route: 048
  5. NAFRONYL [Concomitant]
     Active Substance: NAFRONYL
     Indication: Prophylaxis
     Dosage: 1 TAB ON NIGHT
     Route: 048
  6. ERASTAPEX TRIO [Concomitant]
     Indication: Hypertension
     Dosage: 1/2 TAB BEFORE BREAKFAST
     Route: 048
  7. ACHTENON [Concomitant]
     Indication: Coagulopathy
     Dosage: 1 TAB AFTER BREAKFAST
     Route: 048
  8. ACHTENON [Concomitant]
     Indication: Parkinson^s disease

REACTIONS (4)
  - Cerebrovascular accident [Unknown]
  - Arterial therapeutic procedure [Unknown]
  - Toe amputation [Unknown]
  - Toe amputation [Unknown]
